FAERS Safety Report 14396946 (Version 1)
Quarter: 2018Q1

REPORT INFORMATION
  Report Type: Spontaneous
  Country: US (occurrence: US)
  Receive Date: 20180116
  Receipt Date: 20180116
  Transmission Date: 20180509
  Serious: No
  Sender: FDA-Public Use
  Company Number: US-ALLERGAN-1750972US

PATIENT
  Sex: Female

DRUGS (1)
  1. BOTOX [Suspect]
     Active Substance: ONABOTULINUMTOXINA
     Indication: PRODUCT USED FOR UNKNOWN INDICATION
     Dosage: UNK, SINGLE
     Route: 043
     Dates: start: 20170323, end: 20170323

REACTIONS (5)
  - Hypersensitivity [Not Recovered/Not Resolved]
  - Eyelid operation [Unknown]
  - Eyelid irritation [Unknown]
  - Eye discharge [Not Recovered/Not Resolved]
  - Eyelid oedema [Not Recovered/Not Resolved]
